FAERS Safety Report 8202044-0 (Version None)
Quarter: 2012Q1

REPORT INFORMATION
  Report Type: 
  Country: None (occurrence: None)
  Receive Date: 20120312
  Receipt Date: 20120301
  Transmission Date: 20120608
  Serious: Yes (Hospitalization)
  Sender: FDA-Public Use
  Company Number: CH-MERCK-1203USA00074

PATIENT
  Age: 58 Year
  Sex: Female

DRUGS (3)
  1. FOSAMAX [Suspect]
     Route: 048
     Dates: start: 20050101
  2. NEXIUM [Concomitant]
     Route: 065
  3. CHOLECALCIFEROL [Concomitant]
     Route: 048

REACTIONS (1)
  - PATHOLOGICAL FRACTURE [None]
